FAERS Safety Report 18619538 (Version 1)
Quarter: 2020Q4

REPORT INFORMATION
  Report Type: Report from Study
  Country: GB (occurrence: GB)
  Receive Date: 20201215
  Receipt Date: 20201215
  Transmission Date: 20210114
  Serious: Yes (Other)
  Sender: FDA-Public Use
  Company Number: GB-BRISTOL-MYERS SQUIBB COMPANY-BMS-2020-106568

PATIENT
  Age: 76 Year
  Sex: Female

DRUGS (1)
  1. ABATACEPT [Suspect]
     Active Substance: ABATACEPT
     Indication: ANAEMIA
     Dosage: 125 MILLIGRAM, QWK
     Route: 058
     Dates: start: 2015

REACTIONS (2)
  - Intentional product use issue [Unknown]
  - Renal disorder [Unknown]
